FAERS Safety Report 23632231 (Version 1)
Quarter: 2024Q1

REPORT INFORMATION
  Report Type: Spontaneous
  Country: US (occurrence: US)
  Receive Date: 20240314
  Receipt Date: 20240314
  Transmission Date: 20240409
  Serious: Yes (Hospitalization, Other)
  Sender: FDA-Public Use
  Company Number: US-GALDERMA-US2024004248

PATIENT

DRUGS (2)
  1. DOXYCYCLINE [Suspect]
     Active Substance: DOXYCYCLINE
     Indication: Human ehrlichiosis
     Dosage: 1 DOSAGE FORM
     Route: 048
  2. SULFASALAZINE EC [Concomitant]
     Active Substance: SULFASALAZINE
     Indication: Colitis ulcerative
     Route: 065

REACTIONS (4)
  - Seizure [Recovered/Resolved]
  - Encephalopathy [Recovered/Resolved]
  - Intentional product use issue [Recovered/Resolved]
  - Drug effective for unapproved indication [Recovered/Resolved]
